FAERS Safety Report 9901690 (Version 2)
Quarter: 2014Q3

REPORT INFORMATION
  Report Type: Spontaneous
  Country: US (occurrence: US)
  Receive Date: 20140217
  Receipt Date: 20140808
  Transmission Date: 20150326
  Serious: Yes (Hospitalization, Other)
  Sender: FDA-Public Use
  Company Number: US-009507513-1402USA007226

PATIENT
  Sex: Female
  Weight: 109.8 kg

DRUGS (1)
  1. NUVARING [Suspect]
     Active Substance: ETHINYL ESTRADIOL\ETONOGESTREL
     Dosage: 0.12-0.015 MG/24HR, INSERT 1 EACH VAGINALLY MONTHLY
     Route: 067
     Dates: start: 20110701, end: 20121024

REACTIONS (11)
  - Pulmonary embolism [Unknown]
  - Sinusitis [Unknown]
  - Deep vein thrombosis [Unknown]
  - Papilloma viral infection [Unknown]
  - Anxiety [Unknown]
  - Thrombocytopenia [Unknown]
  - Migraine [Unknown]
  - Cough [Unknown]
  - Depression [Unknown]
  - Bronchitis [Unknown]
  - Otitis media [Unknown]

NARRATIVE: CASE EVENT DATE: 201210
